FAERS Safety Report 23281750 (Version 3)
Quarter: 2024Q1

REPORT INFORMATION
  Report Type: Report from Study
  Country: US (occurrence: US)
  Receive Date: 20231211
  Receipt Date: 20240101
  Transmission Date: 20240410
  Serious: Yes (Hospitalization)
  Sender: FDA-Public Use
  Company Number: US-BAUSCH-BL-2023-018146

PATIENT
  Age: 37 Year
  Sex: Male

DRUGS (1)
  1. XIFAXAN [Suspect]
     Active Substance: RIFAXIMIN
     Indication: Hepatic encephalopathy
     Route: 048
     Dates: end: 202312

REACTIONS (3)
  - Renal disorder [Not Recovered/Not Resolved]
  - Hepatic steatosis [Unknown]
  - Hospitalisation [Not Recovered/Not Resolved]
